FAERS Safety Report 5603099-X (Version None)
Quarter: 2008Q1

REPORT INFORMATION
  Report Type: 
  Country: None (occurrence: None)
  Receive Date: 20080125
  Receipt Date: 20080115
  Transmission Date: 20080703
  Serious: Yes (Death, Disabling, Other)
  Sender: FDA-Public Use
  Company Number: PH-PFIZER INC-2008003242

PATIENT
  Sex: Female
  Weight: 45.4 kg

DRUGS (3)
  1. ALDAZIDE [Suspect]
  2. DILTIAZEM [Suspect]
  3. ANTIHYPERTENSIVES [Concomitant]

REACTIONS (4)
  - GAIT DISTURBANCE [None]
  - MULTI-ORGAN FAILURE [None]
  - OEDEMA [None]
  - PAIN [None]
